FAERS Safety Report 10080463 (Version 1)
Quarter: 2014Q2

REPORT INFORMATION
  Report Type: Spontaneous
  Country: US (occurrence: US)
  Receive Date: 20140416
  Receipt Date: 20140416
  Transmission Date: 20141212
  Serious: Yes (Death, Hospitalization)
  Sender: FDA-Public Use
  Company Number: US-ROCHE-1379478

PATIENT
  Age: 73 Year
  Sex: Male
  Weight: 82.22 kg

DRUGS (15)
  1. RITUXIMAB [Suspect]
     Indication: CHRONIC LYMPHOCYTIC LEUKAEMIA
     Route: 042
     Dates: start: 20140107
  2. RITUXIMAB [Suspect]
     Route: 042
     Dates: start: 20140107
  3. RITUXIMAB [Suspect]
     Route: 065
     Dates: start: 2008
  4. TYLENOL/CODEINE [Concomitant]
     Route: 065
  5. AMLODIPINE [Concomitant]
     Dosage: 5 DAILY
     Route: 065
  6. AZITHROMYCIN [Concomitant]
     Dosage: 250 DAILY
     Route: 065
  7. DOXYCYCLIN [Concomitant]
     Dosage: 100 EVERY 12 HOURS
     Route: 065
  8. FAMOTIDINE [Concomitant]
     Dosage: 40 TWICE A DAY
     Route: 065
  9. ATROVENT [Concomitant]
     Dosage: 2 SPRAYS PRN
     Route: 065
  10. LOPERAMIDE [Concomitant]
     Dosage: PRN
     Route: 065
  11. MELOXICAM [Concomitant]
     Route: 065
  12. ONDANSETRON [Concomitant]
     Dosage: Q8H PRN
     Route: 065
  13. PREDNISONE [Concomitant]
     Route: 065
  14. OMEPRAZOLE [Concomitant]
     Dosage: 20 DAILY
     Route: 065
  15. TAMSULOSIN [Concomitant]
     Route: 065

REACTIONS (6)
  - Colitis ischaemic [Fatal]
  - Systemic inflammatory response syndrome [Fatal]
  - Disseminated intravascular coagulation [Fatal]
  - Bronchiectasis [Unknown]
  - Hypogammaglobulinaemia [Unknown]
  - Chronic lymphocytic leukaemia [Fatal]
